FAERS Safety Report 25828603 (Version 1)
Quarter: 2025Q3

REPORT INFORMATION
  Report Type: Spontaneous
  Country: JP (occurrence: JP)
  Receive Date: 20250922
  Receipt Date: 20250922
  Transmission Date: 20251021
  Serious: Yes (Other)
  Sender: MERCK SHARP & DOHME LLC
  Company Number: JP-009507513-2330317

PATIENT
  Age: 76 Year
  Sex: Male

DRUGS (4)
  1. KEYTRUDA [Suspect]
     Active Substance: PEMBROLIZUMAB
     Indication: Transitional cell cancer of the renal pelvis and ureter
     Route: 065
  2. KEYTRUDA [Suspect]
     Active Substance: PEMBROLIZUMAB
     Indication: Transitional cell cancer of the renal pelvis and ureter
     Route: 065
  3. PADCEV [Suspect]
     Active Substance: ENFORTUMAB VEDOTIN-EJFV
     Indication: Transitional cell cancer of the renal pelvis and ureter
     Route: 065
  4. PADCEV [Suspect]
     Active Substance: ENFORTUMAB VEDOTIN-EJFV
     Indication: Transitional cell cancer of the renal pelvis and ureter
     Route: 065

REACTIONS (3)
  - Neuropathy peripheral [Unknown]
  - Skin disorder [Unknown]
  - Interstitial lung disease [Unknown]
